FAERS Safety Report 8198530-2 (Version None)
Quarter: 2012Q1

REPORT INFORMATION
  Report Type: 
  Country: None (occurrence: None)
  Receive Date: 20120309
  Receipt Date: 20111222
  Transmission Date: 20120608
  Serious: No
  Sender: FDA-Public Use
  Company Number: US-AMGEN-USASP2011051009

PATIENT
  Age: 63 Year
  Sex: Female

DRUGS (4)
  1. ATENOLOL [Concomitant]
  2. PROLIA [Suspect]
     Indication: OSTEOPOROSIS POSTMENOPAUSAL
     Dosage: 60 MG, Q6MO
     Dates: start: 20110201
  3. CALCIUM WITH VITAMIN D             /00944201/ [Concomitant]
  4. VITAMIN D [Concomitant]

REACTIONS (1)
  - MYALGIA [None]
